FAERS Safety Report 25432717 (Version 2)
Quarter: 2025Q3

REPORT INFORMATION
  Report Type: Spontaneous
  Country: EU (occurrence: EU)
  Receive Date: 20250613
  Receipt Date: 20250813
  Transmission Date: 20251020
  Serious: Yes (Other)
  Sender: TEVA
  Company Number: EU-TEVA-VS-3338423

PATIENT
  Age: 74 Year
  Sex: Male

DRUGS (8)
  1. MOXONIDINE [Suspect]
     Active Substance: MOXONIDINE
     Indication: Hypertension
     Dosage: ONCE IN THE MORNING AND ONCE IN THE EVENING FOR OVER 5 YEARS
     Route: 065
  2. GLIMEPIRIDE [Suspect]
     Active Substance: GLIMEPIRIDE
     Indication: Diabetes mellitus
     Dosage: FOR 15 YEARS
     Route: 065
  3. METFORMIN [Suspect]
     Active Substance: METFORMIN HYDROCHLORIDE
     Indication: Diabetes mellitus
     Route: 065
  4. HYDROCHLOROTHIAZIDE\LOSARTAN POTASSIUM [Suspect]
     Active Substance: HYDROCHLOROTHIAZIDE\LOSARTAN POTASSIUM
     Indication: Hypertension
     Dosage: 50/12.5 MG IN THE MORNING FOR OVER 10 YEARS
     Route: 065
  5. NIFEDIPINE [Suspect]
     Active Substance: NIFEDIPINE
     Indication: Hypertension
     Dosage: ONCE IN THE MORNING AND ONCE IN THE EVENING FOR OVER 10 YEARS
     Route: 065
  6. PENTOXIFYLLINE [Concomitant]
     Active Substance: PENTOXIFYLLINE
     Indication: Product used for unknown indication
     Dosage: FOR 20 YEARS
  7. METOPROLOL [Suspect]
     Active Substance: METOPROLOL
     Indication: Diabetes mellitus
     Dosage: 50 MG HALF TABLET, TARTRATE, FOR THE PAST 3 YEARS
     Route: 065
  8. THIOCTIC ACID [Concomitant]
     Active Substance: THIOCTIC ACID
     Indication: Product used for unknown indication
     Route: 065

REACTIONS (1)
  - Basal cell carcinoma [Recovering/Resolving]
